FAERS Safety Report 7602675-2 (Version None)
Quarter: 2011Q3

REPORT INFORMATION
  Report Type: 
  Country: None (occurrence: None)
  Receive Date: 20110701
  Receipt Date: 20090916
  Transmission Date: 20111222
  Serious: No
  Sender: FDA-Public Use
  Company Number: SIM_00032_2011

PATIENT

DRUGS (2)
  1. TARGET UP AND UP EAR DROPS (HOMEOPATHIC) [Suspect]
     Indication: EAR PAIN
     Dosage: (DF AURICULAR (OTIC))
     Route: 001
     Dates: start: 20090910, end: 20090910
  2. TARGET UP AND UP EAR DROPS (HOMEOPATHIC) [Suspect]
     Indication: TINNITUS
     Dosage: (DF AURICULAR (OTIC))
     Route: 001
     Dates: start: 20090910, end: 20090910

REACTIONS (5)
  - IMPAIRED DRIVING ABILITY [None]
  - EAR PAIN [None]
  - EAR DISCOMFORT [None]
  - DIZZINESS [None]
  - LIQUID PRODUCT PHYSICAL ISSUE [None]
